FAERS Safety Report 8380780-3 (Version None)
Quarter: 2012Q2

REPORT INFORMATION
  Report Type: 
  Country: None (occurrence: None)
  Receive Date: 20120523
  Receipt Date: 20120521
  Transmission Date: 20120825
  Serious: Yes (Hospitalization)
  Sender: FDA-Public Use
  Company Number: FR-ROCHE-1069223

PATIENT
  Sex: Female

DRUGS (5)
  1. MABTHERA [Suspect]
     Indication: ANTISYNTHETASE SYNDROME
     Route: 042
     Dates: start: 20120313, end: 20120328
  2. PREDNISONE TAB [Concomitant]
     Dates: start: 20060101
  3. MABTHERA [Suspect]
     Indication: INTERSTITIAL LUNG DISEASE
  4. PREDNISONE TAB [Concomitant]
     Indication: LUNG DISORDER
     Dates: start: 20040101
  5. AZATHIOPRINE [Concomitant]
     Indication: LUNG DISORDER
     Dates: start: 20060101

REACTIONS (1)
  - LUNG DISORDER [None]
